FAERS Safety Report 10619677 (Version 2)
Quarter: 2014Q4

REPORT INFORMATION
  Report Type: Spontaneous
  Country: MA (occurrence: MA)
  Receive Date: 20141202
  Receipt Date: 20141202
  Transmission Date: 20150529
  Serious: Yes (Death, Hospitalization, Other)
  Sender: FDA-Public Use
  Company Number: MA-TAKEDA-2014JNJ006174

PATIENT

DRUGS (1)
  1. VELCADE [Suspect]
     Active Substance: BORTEZOMIB
     Indication: PLASMA CELL MYELOMA
     Dosage: 3.5 MG AT A DOSAGE OF 2 MG
     Route: 058
     Dates: start: 20141027, end: 20141027

REACTIONS (4)
  - Seizure [Recovered/Resolved]
  - Diabetic hyperosmolar coma [Unknown]
  - Haemorrhagic disorder [Fatal]
  - Respiratory distress [Fatal]

NARRATIVE: CASE EVENT DATE: 20141028
